FAERS Safety Report 5576663-4 (Version None)
Quarter: 2007Q4

REPORT INFORMATION
  Report Type: 
  Country: None (occurrence: None)
  Receive Date: 20071228
  Receipt Date: 20071220
  Transmission Date: 20080405
  Serious: Yes (Life-Threatening, Hospitalization)
  Sender: FDA-Public Use
  Company Number: JP-MERCK-0711USA05613

PATIENT
  Age: 88 Year
  Sex: Female

DRUGS (5)
  1. FOSAMAX [Suspect]
     Indication: OSTEOPOROSIS
     Route: 048
     Dates: start: 20071108, end: 20071115
  2. ROSEOL [Concomitant]
     Route: 048
  3. MECOBALAMIN [Concomitant]
     Route: 048
  4. LIMAPROST ALFADEX [Concomitant]
     Route: 048
     Dates: start: 20071106, end: 20071109
  5. [THERAPY UNSPECIFIED] [Concomitant]
     Route: 065

REACTIONS (1)
  - SHOCK [None]
